FAERS Safety Report 4846565-7 (Version None)
Quarter: 2005Q4

REPORT INFORMATION
  Report Type: 
  Country: None (occurrence: None)
  Receive Date: 20051202
  Receipt Date: 20051118
  Transmission Date: 20060501
  Serious: Yes (Other)
  Sender: FDA-Public Use
  Company Number: KII-2005-0019780

PATIENT
  Age: 41 Year
  Sex: Male

DRUGS (2)
  1. OXYCODONE HCL [Suspect]
     Indication: INTENTIONAL DRUG MISUSE
     Dosage: ORAL
     Route: 048
  2. APAP(PARACETAMOL) [Suspect]

REACTIONS (3)
  - COMA [None]
  - DRUG ABUSER [None]
  - INTENTIONAL OVERDOSE [None]
